FAERS Safety Report 4668914-5 (Version None)
Quarter: 2005Q2

REPORT INFORMATION
  Report Type: 
  Country: None (occurrence: None)
  Receive Date: 20050523
  Receipt Date: 20041209
  Transmission Date: 20051028
  Serious: Yes (Other)
  Sender: FDA-Public Use
  Company Number: PHBS2004CA16776

PATIENT
  Sex: Female

DRUGS (1)
  1. ZOMETA [Suspect]
     Route: 065

REACTIONS (3)
  - GINGIVAL SWELLING [None]
  - ORAL PAIN [None]
  - OSTEONECROSIS [None]
